FAERS Safety Report 10678567 (Version 1)
Quarter: 2014Q4

REPORT INFORMATION
  Report Type: Spontaneous
  Country: FR (occurrence: None)
  Receive Date: 20141223
  Receipt Date: 20141223
  Transmission Date: 20150529
  Serious: Yes (Other)
  Sender: FDA-Public Use
  Company Number: NGX_02693_2014

PATIENT
  Age: 77 Year
  Sex: Female

DRUGS (1)
  1. QUTENZA [Suspect]
     Active Substance: CAPSAICIN
     Indication: NEUROPATHY PERIPHERAL
     Dosage: 1DF CUTANEOUS PATCH TRANSDERMAL
     Dates: start: 20141128, end: 20141128

REACTIONS (3)
  - Hypersensitivity [None]
  - Rhinorrhoea [None]
  - Cough [None]

NARRATIVE: CASE EVENT DATE: 20141128
